FAERS Safety Report 21506752 (Version 3)
Quarter: 2022Q4

REPORT INFORMATION
  Report Type: Other
  Country: US (occurrence: None)
  Receive Date: 20221026
  Receipt Date: 20221130
  Transmission Date: 20230113
  Serious: Yes (Death)
  Sender: FDA-Public Use
  Company Number: US-ROCHE-3205729

PATIENT
  Age: 66 Year
  Sex: Male

DRUGS (23)
  1. VENCLEXTA [Suspect]
     Active Substance: VENETOCLAX
     Indication: Chronic lymphocytic leukaemia
     Dosage: 10MG-50MG-100MG TABLET. TAKE 20 MG FOR 7 DAYS, THEN 50MG FOR 7 DAYS, THEN 100 MG FOR 7 DAYS, THEN 20
     Route: 048
  2. VENCLEXTA [Suspect]
     Active Substance: VENETOCLAX
     Dosage: 10MG-50MG-100MG TABLET. TAKE 20 MG FOR 7 DAYS, THEN 50MG FOR 7 DAYS, THEN 100 MG FOR 7 DAYS, THEN 20
     Route: 048
  3. VENCLEXTA [Suspect]
     Active Substance: VENETOCLAX
     Dosage: TAKE 1 TABLET BY MOUTH (10 MG) DAILY WITH FOOD FOR 7 DAYS. YOU WILL HAVE 1 LEFTOVER?TABLET BEFORE CO
     Route: 048
  4. VENCLEXTA [Suspect]
     Active Substance: VENETOCLAX
     Dosage: TAKE 20MG(2X10MG TABS) BY MOUTH EVERY DAY ON WEEK 1
     Route: 048
  5. VENCLEXTA [Suspect]
     Active Substance: VENETOCLAX
     Dosage: 50MG(1X50MG TAB) DAILY BY MOUTH WEEK 2.
     Route: 048
  6. VENCLEXTA [Suspect]
     Active Substance: VENETOCLAX
     Dosage: THEN, 100MG(1X100MG TAB) BY MOUTH DAILY WEEK 3.
     Route: 048
  7. VENCLEXTA [Suspect]
     Active Substance: VENETOCLAX
     Dosage: THEN, 200MG(2X100MG TABS) DAILY WEEK 4.
     Route: 048
  8. ZOVIRAX [Concomitant]
     Active Substance: ACYCLOVIR
  9. PROVENTIL HFA [Concomitant]
     Active Substance: ALBUTEROL SULFATE
     Indication: Wheezing
     Dosage: 90MCG/ACTUATION INHALER
  10. LIPITOR [Concomitant]
     Active Substance: ATORVASTATIN CALCIUM
     Route: 048
  11. ROCALTROL [Concomitant]
     Active Substance: CALCITRIOL
     Route: 048
  12. PHOSLO [Concomitant]
     Active Substance: CALCIUM ACETATE
     Route: 048
  13. SENSIPAR [Concomitant]
     Active Substance: CINACALCET HYDROCHLORIDE
     Route: 048
  14. CARDIZEM [Concomitant]
     Active Substance: DILTIAZEM HYDROCHLORIDE
     Route: 048
  15. EPIPEN [Concomitant]
     Active Substance: EPINEPHRINE
     Dosage: 0.3MG/0.3ML AUTO-INJECTOR, AS DIRECTED
     Route: 030
  16. LASIX [Concomitant]
     Active Substance: FUROSEMIDE
     Route: 048
  17. VENOFER [Concomitant]
     Active Substance: IRON SUCROSE
     Route: 042
  18. MIRCERA [Concomitant]
     Active Substance: METHOXY POLYETHYLENE GLYCOL-EPOETIN BETA
     Route: 058
  19. TOPROL XL [Concomitant]
     Active Substance: METOPROLOL SUCCINATE
     Route: 048
  20. ULTRAM [Concomitant]
     Active Substance: TRAMADOL HYDROCHLORIDE
     Indication: Pain
     Dosage: TAKE 0.5 TABLETS
     Route: 048
  21. COUMADIN [Concomitant]
     Active Substance: WARFARIN SODIUM
     Route: 048
  22. LISINOPRIL [Concomitant]
     Active Substance: LISINOPRIL
  23. AMLODIPINE [Concomitant]
     Active Substance: AMLODIPINE BESYLATE

REACTIONS (1)
  - Death [Fatal]
